FAERS Safety Report 24584862 (Version 3)
Quarter: 2024Q4

REPORT INFORMATION
  Report Type: Spontaneous
  Country: US (occurrence: US)
  Receive Date: 20241106
  Receipt Date: 20241106
  Transmission Date: 20250114
  Serious: No
  Sender: HILL DERMACEUTICALS, INC.
  Company Number: US-Hill Dermaceuticals, Inc.-2164579

PATIENT
  Sex: Male

DRUGS (2)
  1. TOLAK [Suspect]
     Active Substance: FLUOROURACIL
     Indication: Actinic keratosis
  2. HYDROCORTISONE ACETATE [Concomitant]
     Active Substance: HYDROCORTISONE ACETATE

REACTIONS (10)
  - Skin fissures [Unknown]
  - Application site haemorrhage [Unknown]
  - Skin discolouration [Unknown]
  - Skin exfoliation [Unknown]
  - Swelling of eyelid [Unknown]
  - Application site erythema [Recovering/Resolving]
  - Application site swelling [Unknown]
  - Application site pruritus [Recovered/Resolved]
  - Application site pain [Recovered/Resolved]
  - Application site dryness [Unknown]
